FAERS Safety Report 13553903 (Version 1)
Quarter: 2017Q2

REPORT INFORMATION
  Report Type: Spontaneous
  Country: US (occurrence: US)
  Receive Date: 20170517
  Receipt Date: 20170517
  Transmission Date: 20170830
  Serious: Yes (Hospitalization, Other)
  Sender: FDA-Public Use
  Company Number: US-NAPPMUNDI-USA-2017-0138853

PATIENT
  Age: 78 Year
  Sex: Female
  Weight: 77.69 kg

DRUGS (2)
  1. FENTANYL CITRATE. [Suspect]
     Active Substance: FENTANYL CITRATE
     Indication: PRODUCT USED FOR UNKNOWN INDICATION
     Dosage: UNK
     Route: 065
  2. OXYCODONE HYDROCHLORIDE (SIMILAR TO NDA 22-272) [Suspect]
     Active Substance: OXYCODONE HYDROCHLORIDE
     Indication: PRODUCT USED FOR UNKNOWN INDICATION
     Dosage: UNK
     Route: 048

REACTIONS (10)
  - Hospice care [Unknown]
  - Pain [Unknown]
  - Fatigue [Unknown]
  - Chills [Unknown]
  - Failure to thrive [Unknown]
  - Anaemia [Unknown]
  - Nausea [Unknown]
  - Platelet count decreased [Unknown]
  - Hypophagia [Unknown]
  - Asthenia [Unknown]

NARRATIVE: CASE EVENT DATE: 20170203
